FAERS Safety Report 20300363 (Version 1)
Quarter: 2022Q1

REPORT INFORMATION
  Report Type: Spontaneous
  Country: IT (occurrence: IT)
  Receive Date: 20220105
  Receipt Date: 20220105
  Transmission Date: 20220423
  Serious: Yes (Other)
  Sender: FDA-Public Use
  Company Number: None

PATIENT
  Age: 81 Year
  Sex: Female

DRUGS (5)
  1. KIOVIG [Suspect]
     Active Substance: HUMAN IMMUNOGLOBULIN G
     Indication: Myositis
     Dosage: 60 GRAM
     Route: 042
     Dates: start: 20211025, end: 20211130
  2. ELIQUIS [Concomitant]
     Active Substance: APIXABAN
     Route: 048
  3. NERIDRONIC ACID [Concomitant]
     Active Substance: NERIDRONIC ACID
     Route: 030
  4. CHOLECALCIFEROL [Concomitant]
     Active Substance: CHOLECALCIFEROL
     Route: 048
  5. ATENOLOL [Concomitant]
     Active Substance: ATENOLOL

REACTIONS (3)
  - Atrial fibrillation [Recovered/Resolved]
  - Blood pressure increased [Recovered/Resolved]
  - Tachycardia [Recovered/Resolved]

NARRATIVE: CASE EVENT DATE: 20211027
